FAERS Safety Report 4490788-6 (Version None)
Quarter: 2004Q4

REPORT INFORMATION
  Report Type: 
  Country: None (occurrence: None)
  Receive Date: 20041102
  Receipt Date: 20041008
  Transmission Date: 20050328
  Serious: Yes (Life-Threatening, Hospitalization)
  Sender: FDA-Public Use
  Company Number: US-ROCHE-383014

PATIENT
  Age: 49 Year
  Sex: Male
  Weight: 79.4 kg

DRUGS (5)
  1. FUZEON [Suspect]
     Route: 058
     Dates: start: 20040705, end: 20041006
  2. VIDEX EC [Concomitant]
     Route: 048
     Dates: start: 20040702
  3. KALETRA [Concomitant]
     Route: 048
     Dates: start: 20040702
  4. FOSAMPRENAVIR [Concomitant]
     Route: 048
     Dates: start: 20040702
  5. INSULIN [Concomitant]
     Dosage: DOSE VARIES
     Route: 058
     Dates: start: 19800615

REACTIONS (4)
  - BLOOD GLUCOSE INCREASED [None]
  - HYPOTENSION [None]
  - LOBAR PNEUMONIA [None]
  - STREPTOCOCCAL BACTERAEMIA [None]
